FAERS Safety Report 15180529 (Version 1)
Quarter: 2018Q3

REPORT INFORMATION
  Report Type: Spontaneous
  Country: US (occurrence: US)
  Receive Date: 20180723
  Receipt Date: 20180723
  Transmission Date: 20181010
  Serious: No
  Sender: FDA-Public Use
  Company Number: US-ASTRAZENECA-2018SE86760

PATIENT
  Age: 53 Year
  Sex: Female
  Weight: 115.7 kg

DRUGS (1)
  1. BYDUREON [Suspect]
     Active Substance: EXENATIDE
     Indication: DIABETES MELLITUS
     Route: 057

REACTIONS (4)
  - Injection site extravasation [Unknown]
  - Injection site haemorrhage [Unknown]
  - Underdose [Unknown]
  - Wrong technique in product usage process [Unknown]
